FAERS Safety Report 5310444-1 (Version None)
Quarter: 2007Q2

REPORT INFORMATION
  Report Type: 
  Country: None (occurrence: None)
  Receive Date: 20070427
  Receipt Date: 20070419
  Transmission Date: 20071010
  Serious: Yes (Hospitalization)
  Sender: FDA-Public Use
  Company Number: GB-ABBOTT-07P-167-0366231-00

PATIENT
  Sex: Female

DRUGS (1)
  1. HUMIRA [Suspect]
     Indication: RHEUMATOID ARTHRITIS
     Dates: start: 20050722

REACTIONS (5)
  - AMNESIA [None]
  - COGNITIVE DISORDER [None]
  - DELUSION [None]
  - FALL [None]
  - FEMUR FRACTURE [None]
